FAERS Safety Report 16755343 (Version 1)
Quarter: 2019Q4

REPORT INFORMATION
  Report Type: Spontaneous
  Country: US (occurrence: US)
  Receive Date: 20190828
  Receipt Date: 20190828
  Transmission Date: 20200122
  Serious: Yes (Disabling)
  Sender: FDA-Public Use
  Company Number: None

PATIENT
  Age: 53 Year
  Sex: Male
  Weight: 112.05 kg

DRUGS (1)
  1. DILAUDID [Suspect]
     Active Substance: HYDROMORPHONE HYDROCHLORIDE
     Indication: PAIN
     Route: 048
     Dates: start: 20060101, end: 20190823

REACTIONS (5)
  - Therapy cessation [None]
  - Bedridden [None]
  - Hypertension [None]
  - Pain [None]
  - Mental disorder [None]

NARRATIVE: CASE EVENT DATE: 20190823
